FAERS Safety Report 21792536 (Version 1)
Quarter: 2022Q4

REPORT INFORMATION
  Report Type: Report from Study
  Country: ZA (occurrence: ZA)
  Receive Date: 20221229
  Receipt Date: 20221229
  Transmission Date: 20230112
  Serious: Yes (Other)
  Sender: FDA-Public Use
  Company Number: ZA-002147023-NVSC2022ZA298078

PATIENT
  Age: 83 Year
  Sex: Female

DRUGS (1)
  1. BROLUCIZUMAB [Suspect]
     Active Substance: BROLUCIZUMAB
     Indication: Neovascular age-related macular degeneration
     Dosage: 27.6 MG, QMO (27.6 MG IN 0.23 ML)
     Route: 047
     Dates: start: 20220607

REACTIONS (2)
  - Ophthalmoplegia [Unknown]
  - Stress [Unknown]
